FAERS Safety Report 12804228 (Version 1)
Quarter: 2016Q4

REPORT INFORMATION
  Report Type: Spontaneous
  Country: HR (occurrence: HR)
  Receive Date: 20161003
  Receipt Date: 20161003
  Transmission Date: 20170207
  Serious: Yes (Other)
  Sender: FDA-Public Use
  Company Number: HR-009507513-1609HRV012108

PATIENT
  Sex: Male

DRUGS (4)
  1. RANIX [Suspect]
     Active Substance: RANITIDINE HYDROCHLORIDE
     Route: 048
     Dates: start: 2016, end: 2016
  2. LIPEX 10 MG FILMOM OBLOZENE TABLETE [Suspect]
     Active Substance: SIMVASTATIN
     Route: 048
     Dates: start: 2016, end: 2016
  3. SANVAL [Suspect]
     Active Substance: ZOLPIDEM TARTRATE
     Route: 048
     Dates: start: 2016, end: 2016
  4. PRAZINE [Suspect]
     Active Substance: PROMAZINE HYDROCHLORIDE
     Route: 048
     Dates: start: 2016, end: 2016

REACTIONS (3)
  - Somnolence [Unknown]
  - Suicide attempt [Unknown]
  - Intentional overdose [Unknown]

NARRATIVE: CASE EVENT DATE: 2016
